FAERS Safety Report 6968721-4 (Version None)
Quarter: 2010Q3

REPORT INFORMATION
  Report Type: 
  Country: None (occurrence: None)
  Receive Date: 20100907
  Receipt Date: 20100831
  Transmission Date: 20110219
  Serious: Yes (Hospitalization)
  Sender: FDA-Public Use
  Company Number: US-MERCK-1008USA00965

PATIENT
  Age: 74 Year
  Sex: Female

DRUGS (2)
  1. ZETIA [Suspect]
     Indication: BLOOD CHOLESTEROL
     Route: 048
     Dates: end: 20100728
  2. COUMADIN [Suspect]
     Route: 065

REACTIONS (3)
  - BLOOD DISORDER [None]
  - DRUG INTERACTION [None]
  - PAIN IN EXTREMITY [None]
